FAERS Safety Report 7479483-9 (Version None)
Quarter: 2011Q2

REPORT INFORMATION
  Report Type: 
  Country: None (occurrence: None)
  Receive Date: 20110513
  Receipt Date: 20110513
  Transmission Date: 20111010
  Serious: Yes (Death)
  Sender: FDA-Public Use
  Company Number: MY-ABBOTT-11R-101-0719608-00

PATIENT
  Sex: Male
  Weight: 1.1 kg

DRUGS (1)
  1. SURVANTA [Suspect]
     Indication: ACUTE RESPIRATORY DISTRESS SYNDROME
     Dosage: INTRATRACHEAL
     Dates: end: 20100912

REACTIONS (4)
  - PULMONARY HAEMORRHAGE [None]
  - ACUTE RESPIRATORY DISTRESS SYNDROME [None]
  - BLOODY AIRWAY DISCHARGE [None]
  - USE OF ACCESSORY RESPIRATORY MUSCLES [None]
